FAERS Safety Report 12622548 (Version 2)
Quarter: 2016Q3

REPORT INFORMATION
  Report Type: Spontaneous
  Country: FR (occurrence: FR)
  Receive Date: 20160804
  Receipt Date: 20160808
  Transmission Date: 20161109
  Serious: Yes (Death, Other)
  Sender: FDA-Public Use
  Company Number: FR-TEVA-681474ISR

PATIENT
  Age: 60 Year
  Sex: Male

DRUGS (7)
  1. CEFTAZIDIME. [Concomitant]
     Active Substance: CEFTAZIDIME
     Indication: CITROBACTER SEPSIS
  2. CEFTAZIDIME. [Concomitant]
     Active Substance: CEFTAZIDIME
  3. CLAVULANIC ACID [Concomitant]
     Active Substance: CLAVULANIC ACID
     Indication: CITROBACTER SEPSIS
  4. CIPROFLOXACIN. [Suspect]
     Active Substance: CIPROFLOXACIN
     Indication: CITROBACTER SEPSIS
  5. ERLOTINIB [Interacting]
     Active Substance: ERLOTINIB
     Indication: DISEASE PROGRESSION
  6. TAZOBACTAM [Concomitant]
     Active Substance: TAZOBACTAM
     Indication: CITROBACTER SEPSIS
  7. RACECADOTRIL [Concomitant]
     Active Substance: RACECADOTRIL
     Indication: DIARRHOEA

REACTIONS (7)
  - Large intestinal obstruction [Fatal]
  - Drug interaction [Fatal]
  - Ischaemia [Fatal]
  - Pneumoperitoneum [Fatal]
  - Psoas abscess [Fatal]
  - Large intestine perforation [Fatal]
  - Necrosis [Fatal]
